FAERS Safety Report 12572206 (Version 2)
Quarter: 2016Q3

REPORT INFORMATION
  Report Type: Spontaneous
  Country: GR (occurrence: GR)
  Receive Date: 20160719
  Receipt Date: 20160720
  Transmission Date: 20161109
  Serious: Yes (Congenital Anomaly)
  Sender: FDA-Public Use
  Company Number: GR-SA-2016SA119079

PATIENT

DRUGS (2)
  1. LYRICA [Concomitant]
     Active Substance: PREGABALIN
     Dates: end: 20160621
  2. AUBAGIO [Suspect]
     Active Substance: TERIFLUNOMIDE
     Route: 064
     Dates: start: 201606

REACTIONS (3)
  - Amniotic cavity disorder [Unknown]
  - Foetal malformation [Unknown]
  - Foetal exposure during pregnancy [Unknown]

NARRATIVE: CASE EVENT DATE: 2016
